FAERS Safety Report 10206891 (Version 1)
Quarter: 2014Q2

REPORT INFORMATION
  Report Type: Spontaneous
  Country: BE (occurrence: BE)
  Receive Date: 20140530
  Receipt Date: 20140530
  Transmission Date: 20141212
  Serious: Yes (Other)
  Sender: FDA-Public Use
  Company Number: BE-PFIZER INC-2014147156

PATIENT
  Sex: Female

DRUGS (1)
  1. PROSTIN VR [Suspect]
     Dosage: UNK

REACTIONS (2)
  - Joint effusion [Unknown]
  - Product quality issue [Unknown]
